FAERS Safety Report 11715214 (Version 1)
Quarter: 2015Q4

REPORT INFORMATION
  Report Type: Spontaneous
  Country: US (occurrence: US)
  Receive Date: 20151109
  Receipt Date: 20151109
  Transmission Date: 20160304
  Serious: Yes (Other)
  Sender: FDA-Public Use
  Company Number: US-BAXTER-2015BAX059827

PATIENT
  Sex: Female

DRUGS (1)
  1. TISSEEL KIT [Suspect]
     Active Substance: FIBRINOGEN HUMAN\THROMBIN HUMAN
     Indication: COLECTOMY
     Dosage: INTRA-ABDOMINAL
     Route: 065
     Dates: start: 20151022, end: 20151022

REACTIONS (1)
  - Abdominal abscess [Unknown]
